FAERS Safety Report 13738223 (Version 2)
Quarter: 2017Q3

REPORT INFORMATION
  Report Type: Spontaneous
  Country: DE (occurrence: DE)
  Receive Date: 20170710
  Receipt Date: 20170816
  Transmission Date: 20171127
  Serious: Yes (Other)
  Sender: FDA-Public Use
  Company Number: PHHY2017DE098765

PATIENT
  Sex: Male

DRUGS (1)
  1. FORADIL [Suspect]
     Active Substance: FORMOTEROL FUMARATE
     Indication: CHRONIC OBSTRUCTIVE PULMONARY DISEASE
     Dosage: 1 DF, QD
     Route: 055

REACTIONS (2)
  - Product physical issue [Unknown]
  - Laryngeal cancer [Unknown]

NARRATIVE: CASE EVENT DATE: 2017
